FAERS Safety Report 23682978 (Version 1)
Quarter: 2024Q1

REPORT INFORMATION
  Report Type: Spontaneous
  Country: US (occurrence: None)
  Receive Date: 20240327
  Receipt Date: 20240327
  Transmission Date: 20240410
  Serious: Yes (Life-Threatening, Hospitalization, Disabling, Other)
  Sender: FDA-Public Use
  Company Number: None

PATIENT
  Age: 66 Year
  Sex: Male
  Weight: 81 kg

DRUGS (7)
  1. ZOLOFT [Suspect]
     Active Substance: SERTRALINE HYDROCHLORIDE
     Indication: Depression
     Dates: end: 20230815
  2. FLEXERIL [Suspect]
     Active Substance: CYCLOBENZAPRINE HYDROCHLORIDE
  3. ROSUVASTATIN [Concomitant]
     Active Substance: ROSUVASTATIN
  4. ESOMEPRAZOLE [Concomitant]
     Active Substance: ESOMEPRAZOLE
  5. PAXIL [Concomitant]
     Active Substance: PAROXETINE HYDROCHLORIDE
  6. MULTI-VITAMIN [Concomitant]
     Active Substance: .ALPHA.-TOCOPHEROL ACETATE, DL-\ASCORBIC ACID\CYANOCOBALAMIN\FLUORIDE ION\FOLIC ACID\NIACIN\PYRIDOXI
  7. COENZYME Q10 [Concomitant]
     Active Substance: DIETARY SUPPLEMENT\UBIDECARENONE

REACTIONS (18)
  - Hypoaesthesia [None]
  - Balance disorder [None]
  - Agitation [None]
  - Anxiety [None]
  - Rash [None]
  - Fatigue [None]
  - Confusional state [None]
  - Depression [None]
  - Atrial fibrillation [None]
  - Diarrhoea [None]
  - Muscle twitching [None]
  - Electric shock sensation [None]
  - Fall [None]
  - Suicidal ideation [None]
  - Erectile dysfunction [None]
  - Cerebral disorder [None]
  - Blood cholesterol increased [None]
  - Bruxism [None]

NARRATIVE: CASE EVENT DATE: 20230428
